FAERS Safety Report 9262758 (Version 2)
Quarter: 2013Q3

REPORT INFORMATION
  Report Type: Report from Study
  Country: US (occurrence: US)
  Receive Date: 20130430
  Receipt Date: 20130719
  Transmission Date: 20140515
  Serious: Yes (Other)
  Sender: FDA-Public Use
  Company Number: PHEH2013US009409

PATIENT
  Sex: Male

DRUGS (1)
  1. GLEEVEC [Suspect]
     Indication: CHRONIC MYELOID LEUKAEMIA
     Dosage: 400 MG, DAILY
     Route: 048

REACTIONS (5)
  - Staphylococcal infection [Unknown]
  - Ageusia [Unknown]
  - Muscle spasms [Unknown]
  - Diarrhoea [Unknown]
  - No therapeutic response [Unknown]
